FAERS Safety Report 14493316 (Version 1)
Quarter: 2018Q1

REPORT INFORMATION
  Report Type: Spontaneous
  Country: TR (occurrence: TR)
  Receive Date: 20180206
  Receipt Date: 20180206
  Transmission Date: 20180509
  Serious: Yes (Other)
  Sender: FDA-Public Use
  Company Number: TR-MYLANLABS-2018M1007161

PATIENT
  Age: 7 Decade
  Sex: Male

DRUGS (1)
  1. CARBOPLATIN. [Suspect]
     Active Substance: CARBOPLATIN
     Indication: LUNG ADENOCARCINOMA
     Dosage: UNK
     Route: 065

REACTIONS (1)
  - Chronic myeloid leukaemia [Recovering/Resolving]
